FAERS Safety Report 10733428 (Version 1)
Quarter: 2015Q1

REPORT INFORMATION
  Report Type: Spontaneous
  Country: JP (occurrence: JP)
  Receive Date: 20150123
  Receipt Date: 20150123
  Transmission Date: 20150721
  Serious: Yes (Life-Threatening, Hospitalization, Other)
  Sender: FDA-Public Use
  Company Number: PHHY2014JP156151

PATIENT
  Age: 61 Year
  Sex: Male
  Weight: 63 kg

DRUGS (11)
  1. CLOZARIL [Suspect]
     Active Substance: CLOZAPINE
     Dosage: 12.5 MG, UNK
     Route: 048
     Dates: start: 20141106, end: 20141106
  2. CLOZARIL [Suspect]
     Active Substance: CLOZAPINE
     Dosage: 75 MG, UNK
     Route: 048
     Dates: start: 20141117, end: 20141119
  3. CLOZARIL [Suspect]
     Active Substance: CLOZAPINE
     Dosage: 100 MG, UNK
     Route: 048
     Dates: start: 20141120, end: 20141126
  4. CLOZARIL [Suspect]
     Active Substance: CLOZAPINE
     Dosage: 125 MG, UNK
     Route: 048
     Dates: start: 20141127, end: 20141215
  5. SENNA [Concomitant]
     Active Substance: SENNA LEAF\SENNOSIDES\SENNOSIDES A AND B
     Indication: CONSTIPATION
     Dosage: 1 G
     Route: 048
  6. CLOZARIL [Suspect]
     Active Substance: CLOZAPINE
     Indication: SCHIZOPHRENIA
     Dosage: 175 MG, QD
     Route: 048
     Dates: start: 201411
  7. CLOZARIL [Suspect]
     Active Substance: CLOZAPINE
     Dosage: 25 MG
     Route: 048
     Dates: start: 20141107, end: 20141110
  8. CLOZARIL [Suspect]
     Active Substance: CLOZAPINE
     Dosage: 50 MG, UNK
     Dates: start: 20141111, end: 20141116
  9. PURSENIDE [Concomitant]
     Active Substance: SENNOSIDES A AND B
     Indication: CONSTIPATION
     Dosage: 48 MG
     Route: 048
  10. LANSOPRAZOLE. [Concomitant]
     Active Substance: LANSOPRAZOLE
     Indication: GASTRIC ULCER
     Dosage: 15 MG
     Route: 048
  11. MAGMITT [Concomitant]
     Active Substance: MAGNESIUM OXIDE
     Indication: CONSTIPATION
     Dosage: 330 MG
     Route: 048

REACTIONS (6)
  - Liver disorder [Recovered/Resolved]
  - Heart rate increased [Unknown]
  - Blood pressure systolic increased [Unknown]
  - Granulocyte count decreased [Recovered/Resolved]
  - Eosinophil percentage increased [Unknown]
  - Pyrexia [Unknown]

NARRATIVE: CASE EVENT DATE: 20141214
